FAERS Safety Report 4970585-5 (Version None)
Quarter: 2006Q1

REPORT INFORMATION
  Report Type: 
  Country: None (occurrence: None)
  Receive Date: 20060208
  Receipt Date: 20050215
  Transmission Date: 20060701
  Serious: Yes (Disabling)
  Sender: FDA-Public Use
  Company Number: PHEH2004US05334

PATIENT
  Age: 57 Year
  Sex: Female

DRUGS (2)
  1. ELIDEL [Suspect]
     Indication: ECZEMA
     Dosage: BID, TOPICAL
     Route: 061
     Dates: start: 20040429
  2. DIPROLENE CREAM (BETAMETHASONE DIPROPIONATE) [Concomitant]

REACTIONS (3)
  - BLISTER [None]
  - HERPES ZOSTER [None]
  - VARICELLA [None]
